FAERS Safety Report 4684073-7 (Version None)
Quarter: 2005Q2

REPORT INFORMATION
  Report Type: 
  Country: None (occurrence: None)
  Receive Date: 20050607
  Receipt Date: 20050523
  Transmission Date: 20051028
  Serious: Yes (Hospitalization)
  Sender: FDA-Public Use
  Company Number: PHRM2005FR01597

PATIENT
  Age: 84 Year
  Sex: Male

DRUGS (8)
  1. HYDERGINE [Suspect]
     Dosage: 4.5 MG, QD
     Route: 048
     Dates: end: 20040720
  2. CAPTOPRIL [Suspect]
     Dosage: 25 MG DAILY
     Route: 048
     Dates: end: 20040720
  3. PRAXILENE [Suspect]
     Dosage: 200 MG, TID
     Route: 048
     Dates: end: 20040720
  4. ESTRACYT [Concomitant]
     Dosage: 280 MG, BID
     Route: 048
     Dates: start: 20040718
  5. KARDEGIC [Concomitant]
     Dosage: 160 MG DAILY
     Route: 048
  6. NITROGLYCERIN [Concomitant]
     Dosage: UNK, PRN
  7. NITROGLYCERIN [Concomitant]
     Dosage: UNK, PRN
  8. ZOMETA [Suspect]
     Indication: METASTASES TO BONE
     Dosage: 4 MG, QMO
     Route: 042
     Dates: start: 20040720

REACTIONS (10)
  - ABDOMINAL PAIN UPPER [None]
  - ACUTE RESPIRATORY DISTRESS SYNDROME [None]
  - CARDIAC FAILURE [None]
  - DIFFUSE ALVEOLAR DAMAGE [None]
  - DYSPNOEA AT REST [None]
  - HYPERTHERMIA [None]
  - LUNG DISORDER [None]
  - MYOCARDIAL INFARCTION [None]
  - OEDEMA PERIPHERAL [None]
  - RALES [None]
